FAERS Safety Report 7450648-5 (Version None)
Quarter: 2011Q2

REPORT INFORMATION
  Report Type: 
  Country: None (occurrence: None)
  Receive Date: 20110502
  Receipt Date: 20110418
  Transmission Date: 20111010
  Serious: Yes (Death)
  Sender: FDA-Public Use
  Company Number: GB-MYLANLABS-2011S1008284

PATIENT
  Age: 54 Year
  Sex: Male

DRUGS (6)
  1. HYDROCORTISONE [Suspect]
     Indication: ACUTE MYELOID LEUKAEMIA
     Route: 037
  2. ETOPOSIDE [Suspect]
     Indication: ACUTE MYELOID LEUKAEMIA
     Dosage: SYSTEMIC CHEMTHERAPY; MODIFIED BFM-12 INDUCTION PROTOCOL
     Route: 065
  3. IDARUBICIN [Suspect]
     Indication: ACUTE MYELOID LEUKAEMIA
     Dosage: SYSTEMIC CHEMOTHERAPY; MODIFIED BFM-12 INDUCTION PROTOCOL
     Route: 065
  4. CYTARABINE [Suspect]
     Dosage: SYSTEMIC CHEMOTHERAPY; MODIFIED BFM-12 INDUCTION PROTOCOL
     Route: 065
  5. CYTARABINE [Suspect]
     Indication: ACUTE MYELOID LEUKAEMIA
     Route: 037
  6. METHOTREXATE [Suspect]
     Indication: ACUTE MYELOID LEUKAEMIA
     Route: 037

REACTIONS (3)
  - FEBRILE NEUTROPENIA [None]
  - SEPTIC SHOCK [None]
  - SYSTEMIC MYCOSIS [None]
